FAERS Safety Report 9089900 (Version 1)
Quarter: 2013Q1

REPORT INFORMATION
  Report Type: Spontaneous
  Country: US (occurrence: US)
  Receive Date: 20130131
  Receipt Date: 20130131
  Transmission Date: 20140127
  Serious: Yes (Hospitalization, Other)
  Sender: FDA-Public Use
  Company Number: US-009507513-1301USA014256

PATIENT
  Sex: Male

DRUGS (8)
  1. SINGULAIR [Suspect]
  2. TRAZODONE HYDROCHLORIDE [Concomitant]
  3. OMEPRAZOLE [Concomitant]
  4. CLONAZEPAM [Concomitant]
  5. LORATADINE [Concomitant]
  6. BUPROPION HYDROCHLORIDE [Concomitant]
  7. ZOLPIDEM TARTRATE [Concomitant]
  8. NICOTINE [Concomitant]

REACTIONS (1)
  - Suicide attempt [Unknown]
